FAERS Safety Report 8831730 (Version 2)
Quarter: 2014Q2

REPORT INFORMATION
  Report Type: Spontaneous
  Country: US (occurrence: US)
  Receive Date: 20121009
  Receipt Date: 20140409
  Transmission Date: 20141212
  Serious: No
  Sender: FDA-Public Use
  Company Number: US-009507513-1210USA003243

PATIENT
  Sex: Male

DRUGS (2)
  1. PROPECIA [Suspect]
     Indication: ANDROGENETIC ALOPECIA
     Dosage: 1 MG, QD
     Dates: start: 20101025, end: 201101
  2. NIZORAL [Concomitant]
     Dosage: 2 %, QD
     Route: 061
     Dates: start: 20101025

REACTIONS (8)
  - Cognitive disorder [Not Recovered/Not Resolved]
  - Sexual dysfunction [Not Recovered/Not Resolved]
  - Erectile dysfunction [Not Recovered/Not Resolved]
  - Ejaculation disorder [Unknown]
  - Premature ejaculation [Unknown]
  - Spontaneous penile erection [Unknown]
  - Seborrhoeic dermatitis [Unknown]
  - Adverse drug reaction [Unknown]
